FAERS Safety Report 8002956-7 (Version None)
Quarter: 2011Q4

REPORT INFORMATION
  Report Type: 
  Country: None (occurrence: None)
  Receive Date: 20111222
  Receipt Date: 20110509
  Transmission Date: 20120403
  Serious: No
  Sender: FDA-Public Use
  Company Number: US-GLAXOSMITHKLINE-A0926618A

PATIENT
  Sex: Male

DRUGS (4)
  1. AVODART [Suspect]
     Indication: BENIGN PROSTATIC HYPERPLASIA
     Dosage: .5MLH PER DAY
     Route: 048
     Dates: start: 20110420
  2. HYZAAR [Concomitant]
  3. ASPIRIN [Concomitant]
  4. TAMSULOSIN HCL [Suspect]
     Dosage: .4MG PER DAY
     Dates: start: 20110420

REACTIONS (5)
  - DRUG INEFFECTIVE [None]
  - MICTURITION URGENCY [None]
  - URINARY INCONTINENCE [None]
  - URINARY RETENTION [None]
  - NOCTURIA [None]
